FAERS Safety Report 11743272 (Version 2)
Quarter: 2016Q1

REPORT INFORMATION
  Report Type: Report from Study
  Country: BR (occurrence: BR)
  Receive Date: 20151116
  Receipt Date: 20160120
  Transmission Date: 20160525
  Serious: No
  Sender: FDA-Public Use
  Company Number: PHHY2015BR145964

PATIENT
  Age: 80 Year
  Sex: Male

DRUGS (5)
  1. NEOTIAPIM [Suspect]
     Active Substance: QUETIAPINE
     Dosage: 75 MG, QD
     Route: 065
  2. NEOTIAPIM [Suspect]
     Active Substance: QUETIAPINE
     Dosage: 125 MG, QD, IN THE AFTERNOON
     Route: 065
  3. NEOTIAPIM [Suspect]
     Active Substance: QUETIAPINE
     Dosage: 125 MG, QD AT NIGHT
     Route: 065
  4. NEOTIAPIM [Suspect]
     Active Substance: QUETIAPINE
     Indication: PARKINSON^S DISEASE
     Dosage: 50 MG, QD IN THE MORNING
     Route: 065
  5. NEOTIAPIM [Suspect]
     Active Substance: QUETIAPINE
     Dosage: 100 MG, QD
     Route: 065

REACTIONS (2)
  - Off label use [Unknown]
  - Drug administration error [Unknown]
